FAERS Safety Report 14700405 (Version 2)
Quarter: 2018Q2

REPORT INFORMATION
  Report Type: Spontaneous
  Country: CN (occurrence: CN)
  Receive Date: 20180330
  Receipt Date: 20180403
  Transmission Date: 20180711
  Serious: Yes (Other)
  Sender: FDA-Public Use
  Company Number: CN-JNJFOC-20180342879

PATIENT
  Age: 40 Year
  Sex: Male
  Weight: 140 kg

DRUGS (2)
  1. POVIDONE [Concomitant]
     Active Substance: POVIDONE
     Indication: INFECTION
     Route: 061
     Dates: start: 20170702, end: 20170704
  2. SPORANOX [Suspect]
     Active Substance: ITRACONAZOLE
     Indication: INFECTION
     Route: 048
     Dates: start: 20170702, end: 20170704

REACTIONS (1)
  - Deafness [Recovering/Resolving]

NARRATIVE: CASE EVENT DATE: 20170704
